FAERS Safety Report 5930049-9 (Version None)
Quarter: 2008Q4

REPORT INFORMATION
  Report Type: 
  Country: None (occurrence: None)
  Receive Date: 20081024
  Receipt Date: 20081023
  Transmission Date: 20090506
  Serious: Yes (Death, Other)
  Sender: FDA-Public Use
  Company Number: JP-B.I. PHARMACEUTICALS,INC./RIDGEFIELD-2008-BP-16076NB

PATIENT
  Sex: Female
  Weight: 42.6 kg

DRUGS (2)
  1. MICARDIS [Suspect]
     Indication: HYPERTENSION
     Dosage: 40MG
     Route: 048
     Dates: start: 20060425, end: 20071225
  2. HERBESSER R [Concomitant]
     Dosage: 100MG
     Route: 048
     Dates: start: 20060425, end: 20071225

REACTIONS (1)
  - LUNG NEOPLASM MALIGNANT [None]
